FAERS Safety Report 10475684 (Version 1)
Quarter: 2014Q3

REPORT INFORMATION
  Report Type: Report from Study
  Country: GB (occurrence: GB)
  Receive Date: 20140925
  Receipt Date: 20140925
  Transmission Date: 20150326
  Serious: Yes (Hospitalization)
  Sender: FDA-Public Use
  Company Number: GB-ABBVIE-14K-167-1286853-00

PATIENT
  Age: 56 Year
  Sex: Female
  Weight: 59.3 kg

DRUGS (1)
  1. HUMIRA [Suspect]
     Active Substance: ADALIMUMAB
     Indication: PSORIASIS
     Route: 058
     Dates: start: 20140324, end: 20140711

REACTIONS (5)
  - Headache [Recovered/Resolved]
  - Photophobia [Recovered/Resolved]
  - Sepsis [Recovered/Resolved]
  - Liver function test abnormal [Recovered/Resolved]
  - Chills [Recovered/Resolved]

NARRATIVE: CASE EVENT DATE: 2014
